FAERS Safety Report 5951514-4 (Version None)
Quarter: 2008Q4

REPORT INFORMATION
  Report Type: 
  Country: None (occurrence: None)
  Receive Date: 20081113
  Receipt Date: 20080926
  Transmission Date: 20090506
  Serious: Yes (Hospitalization)
  Sender: FDA-Public Use
  Company Number: DE-ROCHE-594482

PATIENT
  Sex: Female

DRUGS (20)
  1. CAPECITABINE [Suspect]
     Route: 048
     Dates: start: 20060101
  2. CAPECITABINE [Suspect]
     Route: 048
     Dates: start: 20071001
  3. CAPECITABINE [Suspect]
     Route: 048
     Dates: start: 20080129
  4. BEVACIZUMAB [Suspect]
     Route: 042
     Dates: start: 20060101
  5. BEVACIZUMAB [Suspect]
     Route: 042
     Dates: start: 20071001
  6. BEVACIZUMAB [Suspect]
     Route: 042
     Dates: start: 20080129
  7. OXALIPLATIN [Suspect]
     Route: 042
     Dates: start: 20071001
  8. OXALIPLATIN [Suspect]
     Route: 042
     Dates: start: 20080126
  9. KEVATRIL [Concomitant]
     Route: 042
     Dates: start: 20080311, end: 20080311
  10. DEXAMETHASONE TAB [Concomitant]
     Dates: start: 20080311, end: 20080311
  11. EMEND [Concomitant]
     Dosage: DOSE 125 MG DAY1, 80 MG DAY 2 AND 3 OF CHEMOTHERAPY.
     Route: 048
     Dates: start: 20080311, end: 20080313
  12. CLEMASTINE FUMARATE [Concomitant]
     Route: 065
     Dates: start: 20080311, end: 20080311
  13. PALLADONE [Concomitant]
     Dates: start: 20071201
  14. LYRICA [Concomitant]
     Route: 048
     Dates: start: 20071201
  15. CYMBALTA [Concomitant]
     Route: 048
     Dates: start: 20071201
  16. ARCOXIA [Concomitant]
     Route: 048
     Dates: start: 20071201, end: 20080201
  17. METOCLOPRAMIDE [Concomitant]
     Indication: ABDOMINAL DISCOMFORT
     Dosage: DOSE: 30 GTT
     Route: 048
     Dates: start: 20080201, end: 20080201
  18. METOCLOPRAMIDE [Concomitant]
     Dosage: DOSE: 30 GTT
     Route: 048
     Dates: start: 20080222, end: 20080222
  19. MAGNESIUM SULFATE [Concomitant]
     Route: 048
     Dates: start: 20040101
  20. LORAZEPAM [Concomitant]
     Route: 048
     Dates: start: 20080311, end: 20080311

REACTIONS (9)
  - ASTHENIA [None]
  - AUTOIMMUNE THROMBOCYTOPENIA [None]
  - BLOOD CREATININE INCREASED [None]
  - BLOOD LACTATE DEHYDROGENASE INCREASED [None]
  - CHROMATURIA [None]
  - COOMBS POSITIVE HAEMOLYTIC ANAEMIA [None]
  - FATIGUE [None]
  - FLANK PAIN [None]
  - RENAL FAILURE ACUTE [None]
